FAERS Safety Report 6874995-0 (Version None)
Quarter: 2010Q2

REPORT INFORMATION
  Report Type: 
  Country: None (occurrence: None)
  Receive Date: 20100616
  Receipt Date: 20090825
  Transmission Date: 20101027
  Serious: Yes (Other)
  Sender: FDA-Public Use
  Company Number: 1000006625

PATIENT
  Age: 76 Year
  Sex: Female
  Weight: 51.2565 kg

DRUGS (12)
  1. NAMENDA [Suspect]
     Indication: DEMENTIA ALZHEIMER'S TYPE
     Dosage: SEE IMAGE
     Route: 048
     Dates: start: 20090501, end: 20090501
  2. NAMENDA [Suspect]
     Indication: DEMENTIA ALZHEIMER'S TYPE
     Dosage: SEE IMAGE
     Route: 048
     Dates: start: 20090501, end: 20090501
  3. NAMENDA [Suspect]
     Indication: DEMENTIA ALZHEIMER'S TYPE
     Dosage: SEE IMAGE
     Route: 048
     Dates: start: 20090501, end: 20090530
  4. NAMENDA [Suspect]
     Indication: DEMENTIA ALZHEIMER'S TYPE
     Dosage: 5 MG (5 MG,2 IN 1 D),ORAL
     Route: 048
     Dates: start: 20090501, end: 20090501
  5. ARICEPT [Concomitant]
  6. ACTONEL [Concomitant]
  7. RAZADYNE [Concomitant]
  8. LEXAPRO [Concomitant]
  9. ASPIRIN [Concomitant]
  10. COENZYME Q10 [Concomitant]
  11. LOVAZA [Concomitant]
  12. FOOD SUPPLEMENT [Concomitant]

REACTIONS (1)
  - DERMATITIS ALLERGIC [None]
